FAERS Safety Report 10084933 (Version 1)
Quarter: 2014Q2

REPORT INFORMATION
  Report Type: Spontaneous
  Country: IN (occurrence: IN)
  Receive Date: 20140417
  Receipt Date: 20140417
  Transmission Date: 20141212
  Serious: Yes (Other)
  Sender: FDA-Public Use
  Company Number: IN-BAXTER-2014BAX018025

PATIENT
  Age: 43 Year
  Sex: Female

DRUGS (2)
  1. HUMAN IMMUNOGLOBULIN IVIG, TRIPLE VIRALLY REDUCED (TVR) SOLUTION FOR I [Suspect]
     Indication: GUILLAIN-BARRE SYNDROME
     Dosage: 2 G/KG
     Route: 042
  2. HUMAN IMMUNOGLOBULIN IVIG, TRIPLE VIRALLY REDUCED (TVR) SOLUTION FOR I [Suspect]
     Indication: OFF LABEL USE

REACTIONS (1)
  - Encephalitis [Recovered/Resolved]
